FAERS Safety Report 6409789-3 (Version None)
Quarter: 2009Q4

REPORT INFORMATION
  Report Type: 
  Country: None (occurrence: None)
  Receive Date: 20091022
  Receipt Date: 20091014
  Transmission Date: 20100525
  Serious: Yes (Other)
  Sender: FDA-Public Use
  Company Number: US-JNJFOC-20091004845

PATIENT
  Sex: Female
  Weight: 79.38 kg

DRUGS (9)
  1. DURAGESIC-100 [Suspect]
     Route: 062
  2. DURAGESIC-100 [Suspect]
     Route: 062
  3. DURAGESIC-100 [Suspect]
     Indication: DRUG USE FOR UNKNOWN INDICATION
     Dosage: 3 PATCHES OF 100 UG/HR EVERY 72 HOURS
     Route: 062
  4. DILAUDID [Concomitant]
     Route: 065
  5. ZANAFLEX [Concomitant]
     Route: 065
  6. COREG [Concomitant]
     Route: 048
  7. SYNTHROID [Concomitant]
     Route: 048
  8. PLAVIX [Concomitant]
     Route: 048
  9. ASPIRIN [Concomitant]
     Route: 048

REACTIONS (5)
  - LOWER LIMB FRACTURE [None]
  - MENINGITIS [None]
  - OVERDOSE [None]
  - PAIN [None]
  - PRODUCT ADHESION ISSUE [None]
